FAERS Safety Report 7309796-2 (Version None)
Quarter: 2011Q1

REPORT INFORMATION
  Report Type: 
  Country: None (occurrence: None)
  Receive Date: 20110224
  Receipt Date: 20110210
  Transmission Date: 20110831
  Serious: No
  Sender: FDA-Public Use
  Company Number: US-BIOGENIDEC-2011BI006106

PATIENT
  Age: 32 Year
  Sex: Female

DRUGS (2)
  1. AVONEX [Concomitant]
     Indication: MULTIPLE SCLEROSIS
     Route: 030
  2. TYSABRI [Suspect]
     Indication: MULTIPLE SCLEROSIS
     Route: 042
     Dates: start: 20081003

REACTIONS (4)
  - MUSCULAR WEAKNESS [None]
  - FATIGUE [None]
  - TREMOR [None]
  - CENTRAL NERVOUS SYSTEM LESION [None]
